FAERS Safety Report 8484545-3 (Version None)
Quarter: 2012Q2

REPORT INFORMATION
  Report Type: 
  Country: None (occurrence: None)
  Receive Date: 20120625
  Receipt Date: 20120327
  Transmission Date: 20120825
  Serious: Yes (Other)
  Sender: FDA-Public Use
  Company Number: SIM_00378_2012

PATIENT
  Age: 70 Year
  Sex: Female

DRUGS (1)
  1. CATARACT CARE (HOMEOPATHIC) [Suspect]
     Indication: PRODUCT USED FOR UNKNOWN INDICATION
     Route: 047

REACTIONS (6)
  - VISUAL IMPAIRMENT [None]
  - OCULAR ICTERUS [None]
  - EYE DISCHARGE [None]
  - PURULENCE [None]
  - VITREOUS FLOATERS [None]
  - JAUNDICE [None]
